FAERS Safety Report 19083684 (Version 12)
Quarter: 2021Q3

REPORT INFORMATION
  Report Type: Report from Study
  Country: FR (occurrence: FR)
  Receive Date: 20210401
  Receipt Date: 20210706
  Transmission Date: 20211014
  Serious: Yes (Hospitalization, Other)
  Sender: FDA-Public Use
  Company Number: FR-JNJFOC-20210340835

PATIENT
  Age: 71 Year
  Sex: Female
  Weight: 82 kg

DRUGS (13)
  1. SELEXIPAG [Suspect]
     Active Substance: SELEXIPAG
     Route: 048
     Dates: start: 20210604
  2. SELEXIPAG [Suspect]
     Active Substance: SELEXIPAG
     Route: 048
     Dates: start: 20210418
  3. SERESTA [Concomitant]
     Active Substance: OXAZEPAM
     Indication: DEPRESSION
  4. SELEXIPAG [Suspect]
     Active Substance: SELEXIPAG
     Route: 048
     Dates: start: 20210331
  5. SELEXIPAG [Suspect]
     Active Substance: SELEXIPAG
     Route: 048
     Dates: start: 20210526
  6. SELEXIPAG [Suspect]
     Active Substance: SELEXIPAG
     Route: 048
     Dates: start: 20210611
  7. SERESTA [Concomitant]
     Active Substance: OXAZEPAM
     Indication: STRESS
     Dosage: 1 OF 10MG IN THE MORNING, 1 OF 10 MG AT NOON AND 0.5 OF 50MG IN THE EVENING
     Route: 065
  8. SELEXIPAG [Suspect]
     Active Substance: SELEXIPAG
     Dosage: STARTED ON 19/MAY/2021
     Route: 048
     Dates: start: 20210519
  9. SELEXIPAG [Suspect]
     Active Substance: SELEXIPAG
     Indication: PULMONARY ARTERIAL HYPERTENSION
     Route: 048
     Dates: start: 20210318
  10. AMBRISENTAN [Concomitant]
     Active Substance: AMBRISENTAN
     Indication: PULMONARY ARTERIAL HYPERTENSION
     Route: 065
  11. SELEXIPAG [Suspect]
     Active Substance: SELEXIPAG
     Route: 048
     Dates: start: 20210322
  12. TADALAFIL. [Concomitant]
     Active Substance: TADALAFIL
     Indication: PULMONARY ARTERIAL HYPERTENSION
     Route: 065
  13. SERESTA [Concomitant]
     Active Substance: OXAZEPAM
     Indication: ANXIETY
     Dosage: 1 OF 10MG IN THE MORNING, 1 OF 10 MG AT NOON AND 0.5 OF 50MG IN THE EVENING
     Route: 065

REACTIONS (36)
  - Lung disorder [Recovering/Resolving]
  - Paranoia [Not Recovered/Not Resolved]
  - Abdominal distension [Not Recovered/Not Resolved]
  - Generalised oedema [Recovered/Resolved]
  - Epistaxis [Recovered/Resolved]
  - Catheterisation cardiac [Unknown]
  - Faeces discoloured [Not Recovered/Not Resolved]
  - Decreased appetite [Not Recovered/Not Resolved]
  - Flushing [Not Recovered/Not Resolved]
  - Diarrhoea [Not Recovered/Not Resolved]
  - Dyspnoea at rest [Recovered/Resolved]
  - Cardiac disorder [Recovering/Resolving]
  - Dry mouth [Not Recovered/Not Resolved]
  - Weight increased [Recovered/Resolved]
  - Infrequent bowel movements [Recovered/Resolved]
  - Muscle spasms [Recovered/Resolved]
  - Polyuria [Not Recovered/Not Resolved]
  - Dyspnoea [Recovering/Resolving]
  - Adverse event [Recovered/Resolved]
  - Weight decreased [Not Recovered/Not Resolved]
  - Fatigue [Recovered/Resolved]
  - Abnormal behaviour [Not Recovered/Not Resolved]
  - Visual impairment [Not Recovered/Not Resolved]
  - Anaemia [Recovering/Resolving]
  - Faecal volume decreased [Not Recovered/Not Resolved]
  - Nausea [Recovered/Resolved]
  - Dyskinesia [Not Recovered/Not Resolved]
  - Abdominal pain upper [Recovered/Resolved]
  - Dyspepsia [Not Recovered/Not Resolved]
  - Vomiting [Recovered/Resolved]
  - Thirst [Not Recovered/Not Resolved]
  - Blood test abnormal [Not Recovered/Not Resolved]
  - Anxiety [Not Recovered/Not Resolved]
  - Insomnia [Recovered/Resolved]
  - Joint swelling [Recovering/Resolving]
  - Pain in jaw [Not Recovered/Not Resolved]

NARRATIVE: CASE EVENT DATE: 202103
